FAERS Safety Report 15869371 (Version 5)
Quarter: 2020Q1

REPORT INFORMATION
  Report Type: Report from Study
  Country: US (occurrence: US)
  Receive Date: 20190125
  Receipt Date: 20200130
  Transmission Date: 20200409
  Serious: No
  Sender: FDA-Public Use
  Company Number: PHEH2019US003819

PATIENT
  Sex: Female

DRUGS (1)
  1. TRILEPTAL [Suspect]
     Active Substance: OXCARBAZEPINE
     Indication: PRODUCT USED FOR UNKNOWN INDICATION
     Dosage: UNK
     Route: 065

REACTIONS (8)
  - Spinal synovial cyst [Unknown]
  - Trigeminal neuralgia [Unknown]
  - Back disorder [Unknown]
  - Hypoacusis [Unknown]
  - Back pain [Unknown]
  - Pain [Not Recovered/Not Resolved]
  - Ear infection [Unknown]
  - Coccydynia [Unknown]

NARRATIVE: CASE EVENT DATE: 2017
